FAERS Safety Report 24579192 (Version 3)
Quarter: 2025Q1

REPORT INFORMATION
  Report Type: Report from Study
  Country: US (occurrence: US)
  Receive Date: 20241105
  Receipt Date: 20250123
  Transmission Date: 20250409
  Serious: Yes (Hospitalization, Other)
  Sender: ABBVIE
  Company Number: US-ABBVIE-5984947

PATIENT
  Age: 57 Year
  Sex: Male
  Weight: 113 kg

DRUGS (9)
  1. HUMIRA [Suspect]
     Active Substance: ADALIMUMAB
     Indication: Hidradenitis
     Dosage: FORM STRENGTH: 40 MILIGRAM, CITRATE FREE
     Route: 058
     Dates: start: 20241112
  2. HUMIRA [Suspect]
     Active Substance: ADALIMUMAB
     Dosage: FORM STRENGTH: 40 MILIGRAM, CITRATE FREE
     Route: 058
     Dates: start: 20230328, end: 20241001
  3. HUMIRA [Suspect]
     Active Substance: ADALIMUMAB
     Route: 058
     Dates: start: 20230314
  4. TAMSULOSIN [Concomitant]
     Active Substance: TAMSULOSIN
     Indication: Hidradenitis
  5. CELEBREX [Concomitant]
     Active Substance: CELECOXIB
     Indication: Antiinflammatory therapy
  6. TYLENOL [Concomitant]
     Active Substance: ACETAMINOPHEN
     Indication: Pain
  7. TYLENOL [Concomitant]
     Active Substance: ACETAMINOPHEN
     Indication: Pain
  8. ALLOPURINOL [Concomitant]
     Active Substance: ALLOPURINOL
     Indication: Nephrolithiasis
  9. ASPIRIN [Concomitant]
     Active Substance: ASPIRIN
     Indication: Postoperative care

REACTIONS (6)
  - Knee arthroplasty [Unknown]
  - Sweat gland infection [Recovering/Resolving]
  - Osteoarthritis [Not Recovered/Not Resolved]
  - Cellulitis [Unknown]
  - Arthritis infective [Not Recovered/Not Resolved]
  - Pyrexia [Unknown]

NARRATIVE: CASE EVENT DATE: 20241001
